FAERS Safety Report 12428401 (Version 3)
Quarter: 2019Q2

REPORT INFORMATION
  Report Type: Report from Study
  Country: US (occurrence: US)
  Receive Date: 20160602
  Receipt Date: 20190402
  Transmission Date: 20190711
  Serious: Yes (Hospitalization)
  Sender: FDA-Public Use
  Company Number: US-009507513-1606USA000267

PATIENT
  Age: 65 Year
  Sex: Female
  Weight: 52.15 kg

DRUGS (14)
  1. DOCUSATE SODIUM. [Concomitant]
     Active Substance: DOCUSATE SODIUM
     Dosage: UNK
     Dates: start: 20160402
  2. EPACADOSTAT [Suspect]
     Active Substance: EPACADOSTAT
     Dosage: 300 MG, UNKNOWN
     Route: 048
     Dates: start: 20160511, end: 20160520
  3. CHOLECALCIFEROL [Concomitant]
     Active Substance: CHOLECALCIFEROL
     Dosage: UNK
     Dates: start: 20130625
  4. NIVOLUMAB [Suspect]
     Active Substance: NIVOLUMAB
     Dosage: 240 MG, UNKNOWN
     Route: 042
     Dates: start: 20160601
  5. LEVOTHYROXINE SODIUM. [Concomitant]
     Active Substance: LEVOTHYROXINE SODIUM
     Dosage: UNK
     Dates: start: 20160324
  6. NIVOLUMAB [Suspect]
     Active Substance: NIVOLUMAB
     Indication: GLIOBLASTOMA MULTIFORME
     Dosage: 240 MG, UNKNOWN
     Route: 042
     Dates: start: 20160504
  7. METFORMIN [Concomitant]
     Active Substance: METFORMIN HYDROCHLORIDE
     Dosage: UNK
     Dates: start: 20160311
  8. KEPPRA [Concomitant]
     Active Substance: LEVETIRACETAM
     Dosage: UNK
     Dates: start: 20160504
  9. SENNA [Concomitant]
     Active Substance: SENNA LEAF\SENNOSIDES\SENNOSIDES A AND B
     Dosage: UNK
     Dates: start: 20160405
  10. EPACADOSTAT [Suspect]
     Active Substance: EPACADOSTAT
     Indication: GLIOBLASTOMA MULTIFORME
     Dosage: 300 MG, BID
     Route: 048
     Dates: start: 20160504
  11. NIVOLUMAB [Suspect]
     Active Substance: NIVOLUMAB
     Dosage: 240 MG, UNKNOWN
     Route: 042
     Dates: start: 20160511
  12. DECADRON [Suspect]
     Active Substance: DEXAMETHASONE
     Indication: PRODUCT USED FOR UNKNOWN INDICATION
     Dosage: 4 MG, QD
     Route: 065
     Dates: start: 20160508
  13. DECADRON [Suspect]
     Active Substance: DEXAMETHASONE
     Dosage: 10 MG, QD
     Route: 065
     Dates: start: 20160521
  14. ACETAMINOPHEN. [Concomitant]
     Active Substance: ACETAMINOPHEN
     Dosage: UNK
     Dates: start: 20160402

REACTIONS (9)
  - Seizure [Recovered/Resolved]
  - Gait disturbance [Recovering/Resolving]
  - Drug hypersensitivity [Recovered/Resolved]
  - Pyrexia [Recovered/Resolved with Sequelae]
  - Hemianopia homonymous [Not Recovered/Not Resolved]
  - Swelling face [Recovering/Resolving]
  - Gait disturbance [Recovered/Resolved with Sequelae]
  - Gait disturbance [Not Recovered/Not Resolved]
  - Rash [Recovering/Resolving]

NARRATIVE: CASE EVENT DATE: 20160504
